FAERS Safety Report 25335681 (Version 1)
Quarter: 2025Q2

REPORT INFORMATION
  Report Type: Spontaneous
  Country: US (occurrence: None)
  Receive Date: 20250519
  Receipt Date: 20250519
  Transmission Date: 20250717
  Serious: Yes (Death)
  Sender: FDA-CTU
  Company Number: None

PATIENT
  Age: 52 Year
  Sex: Female
  Weight: 79.65 kg

DRUGS (1)
  1. ENHERTU [Suspect]
     Active Substance: FAM-TRASTUZUMAB DERUXTECAN-NXKI
     Indication: Breast cancer metastatic
     Dates: start: 20240920, end: 20250418

REACTIONS (3)
  - Myelodysplastic syndrome [None]
  - Cytopenia [None]
  - Therapy change [None]

NARRATIVE: CASE EVENT DATE: 20250502
